FAERS Safety Report 18386464 (Version 1)
Quarter: 2020Q4

REPORT INFORMATION
  Report Type: Report from Study
  Country: US (occurrence: US)
  Receive Date: 20201015
  Receipt Date: 20201015
  Transmission Date: 20210114
  Serious: Yes (Hospitalization)
  Sender: FDA-Public Use
  Company Number: US-EMD SERONO-9175900

PATIENT
  Age: 53 Year
  Sex: Female

DRUGS (6)
  1. MAVENCLAD [Suspect]
     Active Substance: CLADRIBINE
     Dosage: YEAR ONE MONTH TWO THERAPY
     Route: 048
     Dates: start: 20191030, end: 20191103
  2. MAVENCLAD [Suspect]
     Active Substance: CLADRIBINE
     Dosage: YEAR TWO MONTH ONE THERAPY
     Route: 048
     Dates: start: 20200902, end: 20200906
  3. TYLENOL [Suspect]
     Active Substance: ACETAMINOPHEN
     Indication: PRODUCT USED FOR UNKNOWN INDICATION
  4. MAVENCLAD [Suspect]
     Active Substance: CLADRIBINE
     Indication: MULTIPLE SCLEROSIS
     Dosage: YEAR ONE MONTH ONE THERAPY
     Route: 048
     Dates: start: 20191003, end: 20191007
  5. TAMIFLU [Suspect]
     Active Substance: OSELTAMIVIR PHOSPHATE
     Indication: INFLUENZA
     Dosage: START DATE: JAN 2020, AND STOPPED ON AN UNKNOWN DATE.
  6. MAVENCLAD [Suspect]
     Active Substance: CLADRIBINE
     Dosage: YEAR TWO MONTH TWO THERAPY
     Route: 048
     Dates: start: 20200929, end: 20201003

REACTIONS (9)
  - Blood potassium decreased [Unknown]
  - Adverse drug reaction [Unknown]
  - Influenza [Recovered/Resolved]
  - Blood sodium increased [Unknown]
  - Lymphocyte count decreased [Recovered/Resolved]
  - Liver function test increased [Unknown]
  - Fatigue [Unknown]
  - Dyspnoea [Unknown]
  - Gait inability [Unknown]

NARRATIVE: CASE EVENT DATE: 201910
